FAERS Safety Report 4401200-7 (Version None)
Quarter: 2004Q3

REPORT INFORMATION
  Report Type: 
  Country: None (occurrence: None)
  Receive Date: 20040714
  Receipt Date: 20040706
  Transmission Date: 20050211
  Serious: Yes (Other)
  Sender: FDA-Public Use
  Company Number: USA040671353

PATIENT
  Age: 62 Year
  Sex: Female

DRUGS (1)
  1. HUMALOG [Suspect]
     Dosage: 11 U DAY
     Dates: start: 19990101

REACTIONS (9)
  - BLOOD GLUCOSE INCREASED [None]
  - BLOOD IRON DECREASED [None]
  - CARDIAC PACEMAKER INSERTION [None]
  - IMPLANTABLE DEFIBRILLATOR INSERTION [None]
  - MEDICATION ERROR [None]
  - PHARMACEUTICAL PRODUCT COMPLAINT [None]
  - RED BLOOD CELL COUNT DECREASED [None]
  - RENAL DISORDER [None]
  - VISUAL ACUITY REDUCED [None]
